FAERS Safety Report 9505142 (Version 3)
Quarter: 2014Q2

REPORT INFORMATION
  Report Type: Spontaneous
  Country: US (occurrence: US)
  Receive Date: 20130906
  Receipt Date: 20140516
  Transmission Date: 20141212
  Serious: Yes (Death, Hospitalization)
  Sender: FDA-Public Use
  Company Number: US-B.I. PHARMACEUTICALS,INC./RIDGEFIELD-2013-BI-27643BP

PATIENT
  Age: 85 Year
  Sex: Male
  Weight: 90.72 kg

DRUGS (8)
  1. PRADAXA [Suspect]
     Indication: CEREBROVASCULAR ACCIDENT PROPHYLAXIS
     Route: 065
     Dates: start: 201201, end: 20121228
  2. PRADAXA [Suspect]
     Indication: THROMBOSIS PROPHYLAXIS
  3. OMEPRAZOLE [Concomitant]
     Route: 065
     Dates: start: 2004, end: 2013
  4. ECONAZOLE [Concomitant]
     Route: 065
  5. TAMSULOSIN [Concomitant]
     Route: 065
     Dates: start: 2001, end: 2012
  6. METOPROLOL [Concomitant]
     Route: 065
     Dates: start: 2008, end: 2012
  7. GABAPENTIN [Concomitant]
     Route: 065
     Dates: start: 2011, end: 2012
  8. DILTIAZEM [Concomitant]
     Route: 065

REACTIONS (2)
  - Subdural haematoma [Fatal]
  - Haematoma [Fatal]
